FAERS Safety Report 5071669-6 (Version None)
Quarter: 2006Q3

REPORT INFORMATION
  Report Type: 
  Country: None (occurrence: None)
  Receive Date: 20060801
  Receipt Date: 20060719
  Transmission Date: 20061208
  Serious: Yes (Other)
  Sender: FDA-Public Use
  Company Number: 2006025853

PATIENT
  Sex: Male
  Weight: 4 kg

DRUGS (2)
  1. DOSTINEX [Suspect]
     Indication: PROLACTINOMA
     Dosage: (0.5 MG, 1 IN1 WK)
     Dates: start: 20040203
  2. ACETAMINOPHEN [Suspect]
     Indication: HEADACHE
     Dosage: (500 MG, 6 IN 1 D), UNKNOWN

REACTIONS (3)
  - ASTHMA [None]
  - DRUG EXPOSURE DURING PREGNANCY [None]
  - NEONATAL DISORDER [None]
